FAERS Safety Report 7460010-7 (Version None)
Quarter: 2011Q2

REPORT INFORMATION
  Report Type: 
  Country: None (occurrence: None)
  Receive Date: 20110505
  Receipt Date: 20110426
  Transmission Date: 20111010
  Serious: Yes (Hospitalization)
  Sender: FDA-Public Use
  Company Number: FR-ACTELION-A-CH2011-48081

PATIENT
  Sex: Female

DRUGS (8)
  1. TRACLEER [Suspect]
     Indication: SKIN ULCER
     Dosage: 125 MG, BID
     Route: 048
     Dates: start: 20101219, end: 20110222
  2. PLAVIX [Concomitant]
     Dosage: UNK
     Dates: start: 20110201
  3. DILTIAZEM HCL [Concomitant]
     Dosage: UNK
     Dates: start: 20110201
  4. NEXIUM [Concomitant]
     Dosage: UNK
  5. ASPEGIC 325 [Concomitant]
     Dosage: UNK
     Dates: start: 20110201
  6. MOTILIUM [Concomitant]
     Dosage: UNK
     Dates: start: 20110201
  7. TRACLEER [Suspect]
     Dosage: 62.5 MG, BID
     Route: 048
     Dates: start: 20101119, end: 20101218
  8. SIMVASTATIN [Concomitant]
     Dosage: UNK
     Dates: start: 20110201

REACTIONS (4)
  - DYSPNOEA [None]
  - ANGINA PECTORIS [None]
  - ANAEMIA [None]
  - OESOPHAGITIS ULCERATIVE [None]
